FAERS Safety Report 23419574 (Version 1)
Quarter: 2024Q1

REPORT INFORMATION
  Report Type: Report from Study
  Country: DE (occurrence: DE)
  Receive Date: 20240118
  Receipt Date: 20240118
  Transmission Date: 20240410
  Serious: Yes (Hospitalization, Other)
  Sender: FDA-Public Use
  Company Number: DE-ABBVIE-5590626

PATIENT
  Sex: Female

DRUGS (1)
  1. HUMIRA [Suspect]
     Active Substance: ADALIMUMAB
     Indication: Crohn^s disease
     Dosage: FORM STRENGTH: 40 MILLIGRAM
     Route: 058
     Dates: start: 20170222, end: 202311

REACTIONS (5)
  - Suture rupture [Recovered/Resolved]
  - Gastrointestinal stenosis [Recovering/Resolving]
  - Small intestinal stenosis [Recovered/Resolved]
  - Stoma site reaction [Recovering/Resolving]
  - Small intestinal resection [Unknown]
